FAERS Safety Report 16728981 (Version 1)
Quarter: 2019Q3

REPORT INFORMATION
  Report Type: Spontaneous
  Country: US (occurrence: US)
  Receive Date: 20190822
  Receipt Date: 20190822
  Transmission Date: 20191005
  Serious: No
  Sender: FDA-Public Use
  Company Number: US-MALLINCKRODT-T201904288

PATIENT
  Age: 94 Year
  Sex: Female
  Weight: 47 kg

DRUGS (4)
  1. OXYCODONE [Suspect]
     Active Substance: OXYCODONE
     Indication: PRODUCT USED FOR UNKNOWN INDICATION
     Dosage: UNK
     Route: 065
  2. OLANZAPINE. [Interacting]
     Active Substance: OLANZAPINE
     Indication: PRODUCT USED FOR UNKNOWN INDICATION
     Dosage: 20 MG (A WHOLE TABLET; 20 TABLETS)
     Route: 048
  3. HALDOL [Suspect]
     Active Substance: HALOPERIDOL
     Indication: PRODUCT USED FOR UNKNOWN INDICATION
     Dosage: UNK
     Route: 065
  4. OLANZAPINE. [Interacting]
     Active Substance: OLANZAPINE
     Dosage: 10 MG, (ONE-HALF TABLET)
     Route: 048

REACTIONS (7)
  - Drug interaction [Unknown]
  - Posture abnormal [Unknown]
  - Drooling [Unknown]
  - Abnormal behaviour [Unknown]
  - Increased appetite [Unknown]
  - Dry mouth [Unknown]
  - Tremor [Unknown]
